FAERS Safety Report 7078600-2 (Version None)
Quarter: 2010Q4

REPORT INFORMATION
  Report Type: 
  Country: None (occurrence: None)
  Receive Date: 20101102
  Receipt Date: 20101025
  Transmission Date: 20110411
  Serious: Yes (Hospitalization, Other)
  Sender: FDA-Public Use
  Company Number: CA-GENZYME-MOZO-1000417

PATIENT
  Sex: Male

DRUGS (9)
  1. MOZOBIL [Suspect]
     Indication: ACUTE MYELOID LEUKAEMIA
     Dosage: 23 MG, UNK
     Route: 058
     Dates: start: 20100927
  2. FLUDARABINE [Concomitant]
     Indication: BONE MARROW CONDITIONING REGIMEN
     Dosage: UNK
  3. BUSULFAN [Concomitant]
     Indication: BONE MARROW CONDITIONING REGIMEN
  4. CYCLOSPORINE [Concomitant]
  5. LISINOPRIL [Concomitant]
     Dosage: 10 MG, QD
     Route: 048
  6. MYCOPHENOLATE MOFETIL [Concomitant]
     Dosage: 1500 MG, TID
     Route: 048
  7. NORVASC [Concomitant]
     Dosage: 10 MG, QD
     Route: 048
  8. ATIVAN [Concomitant]
     Dosage: UNK
  9. SEPTRA [Concomitant]
     Dosage: 2 UNK, UNK
     Route: 048

REACTIONS (5)
  - GRAFT VERSUS HOST DISEASE [None]
  - HYPERBILIRUBINAEMIA [None]
  - HYPOTENSION [None]
  - MUCOSAL INFLAMMATION [None]
  - SEPSIS [None]
